FAERS Safety Report 11499226 (Version 1)
Quarter: 2015Q3

REPORT INFORMATION
  Report Type: Spontaneous
  Country: US (occurrence: US)
  Receive Date: 20150913
  Receipt Date: 20150913
  Transmission Date: 20151125
  Serious: Yes (Other)
  Sender: FDA-Public Use
  Company Number: PHHY2015US107692

PATIENT
  Age: 39 Year
  Sex: Female

DRUGS (13)
  1. CICLOSPORIN [Suspect]
     Active Substance: CYCLOSPORINE
     Indication: IMMUNOMODULATORY THERAPY
  2. RITUXIMAB [Suspect]
     Active Substance: RITUXIMAB
     Indication: PULMONARY GRANULOMA
     Route: 065
  3. CYTOXAN [Suspect]
     Active Substance: CYCLOPHOSPHAMIDE
     Indication: IMMUNOMODULATORY THERAPY
  4. BASILIXIMAB [Suspect]
     Active Substance: BASILIXIMAB
     Indication: PULMONARY GRANULOMA
     Dosage: UNK
     Route: 065
     Dates: start: 201006, end: 201011
  5. RITUXIMAB [Suspect]
     Active Substance: RITUXIMAB
     Indication: IMMUNOMODULATORY THERAPY
  6. IMURAN [Suspect]
     Active Substance: AZATHIOPRINE
     Indication: PULMONARY GRANULOMA
     Route: 065
  7. CELLCEPT [Suspect]
     Active Substance: MYCOPHENOLATE MOFETIL\MYCOPHENOLATE MOFETIL HYDROCHLORIDE
     Indication: IMMUNOMODULATORY THERAPY
  8. IMURAN [Suspect]
     Active Substance: AZATHIOPRINE
     Indication: IMMUNOMODULATORY THERAPY
  9. CICLOSPORIN [Suspect]
     Active Substance: CYCLOSPORINE
     Indication: PULMONARY GRANULOMA
     Route: 065
  10. BASILIXIMAB [Suspect]
     Active Substance: BASILIXIMAB
     Indication: IMMUNOMODULATORY THERAPY
  11. CELLCEPT [Suspect]
     Active Substance: MYCOPHENOLATE MOFETIL\MYCOPHENOLATE MOFETIL HYDROCHLORIDE
     Indication: PULMONARY GRANULOMA
     Route: 065
  12. CYTOXAN [Suspect]
     Active Substance: CYCLOPHOSPHAMIDE
     Indication: PULMONARY GRANULOMA
     Route: 065
  13. BELIMUMAB [Concomitant]
     Active Substance: BELIMUMAB
     Indication: PRODUCT USED FOR UNKNOWN INDICATION
     Dosage: UNK
     Route: 065
     Dates: start: 201109

REACTIONS (8)
  - Dyspnoea [Unknown]
  - Drug ineffective for unapproved indication [Unknown]
  - Raynaud^s phenomenon [Unknown]
  - Restrictive pulmonary disease [Unknown]
  - Respiratory failure [Unknown]
  - Product use issue [Unknown]
  - Disease progression [Unknown]
  - Weight decreased [Unknown]
